FAERS Safety Report 20684700 (Version 1)
Quarter: 2022Q2

REPORT INFORMATION
  Report Type: Report from Study
  Country: IT (occurrence: IT)
  Receive Date: 20220407
  Receipt Date: 20220407
  Transmission Date: 20220720
  Serious: Yes (Other)
  Sender: FDA-Public Use
  Company Number: None

PATIENT
  Age: 73 Year
  Sex: Female

DRUGS (6)
  1. CLOPIDOGREL [Suspect]
     Active Substance: CLOPIDOGREL BISULFATE
     Dosage: 75 MG, FREQUENCY TIME- 1 DAY, DURATION-55 DAYS
     Dates: start: 20220101, end: 20220225
  2. ASPIRIN [Suspect]
     Active Substance: ASPIRIN
     Dosage: 100 MG, FREQUENCY TIME- 1 DAY, DURATION-55 DAYS
     Dates: start: 20220101, end: 20220225
  3. SAIDOX [Concomitant]
     Dosage: FORM STRENGTH - 2 MG
  4. VASTAT [Concomitant]
     Dosage: FORM STRENGTH: 40 MG
  5. NORMOPRESS [Concomitant]
     Dosage: 100 MG + 2.5 MG
  6. LANSOPRAZOLE [Concomitant]
     Active Substance: LANSOPRAZOLE
     Dosage: 30 MG

REACTIONS (1)
  - Anaemia [Recovering/Resolving]

NARRATIVE: CASE EVENT DATE: 20220225
